FAERS Safety Report 7080571-X (Version None)
Quarter: 2010Q4

REPORT INFORMATION
  Report Type: 
  Country: None (occurrence: None)
  Receive Date: 20101025
  Receipt Date: 20101006
  Transmission Date: 20110411
  Serious: Yes (Other)
  Sender: FDA-Public Use
  Company Number: 2010P1001854

PATIENT
  Age: 35 Year
  Sex: Female

DRUGS (4)
  1. CARBAMAZEPINE [Suspect]
  2. OXYCARBAMAZEPINE (NO PREF. NAME) [Suspect]
  3. REBIF [Suspect]
     Indication: MULTIPLE SCLEROSIS
     Dosage: 44 MCG; TIW; SC
     Route: 058
     Dates: start: 20100717
  4. ACETAMINOPHEN [Concomitant]

REACTIONS (4)
  - CHILLS [None]
  - DRUG HYPERSENSITIVITY [None]
  - INJECTION SITE ERYTHEMA [None]
  - MULTIPLE SCLEROSIS RELAPSE [None]
